FAERS Safety Report 16313343 (Version 1)
Quarter: 2019Q2

REPORT INFORMATION
  Report Type: Spontaneous
  Country: US (occurrence: US)
  Receive Date: 20190515
  Receipt Date: 20190515
  Transmission Date: 20190711
  Serious: No
  Sender: FDA-Public Use
  Company Number: US-GLAXOSMITHKLINE-US2019084036

PATIENT
  Age: 59 Year
  Sex: Female

DRUGS (1)
  1. BENLYSTA [Suspect]
     Active Substance: BELIMUMAB
     Indication: PRODUCT USED FOR UNKNOWN INDICATION
     Dosage: 200 MG, CYC
     Route: 058
     Dates: start: 201812, end: 201902

REACTIONS (6)
  - Weight decreased [Recovered/Resolved]
  - Product dose omission [Unknown]
  - Decreased appetite [Recovered/Resolved]
  - Adverse drug reaction [Recovered/Resolved]
  - Nausea [Not Recovered/Not Resolved]
  - Asthenia [Recovering/Resolving]

NARRATIVE: CASE EVENT DATE: 20190510
